FAERS Safety Report 10458373 (Version 3)
Quarter: 2014Q3

REPORT INFORMATION
  Report Type: Report from Study
  Country: FR (occurrence: FR)
  Receive Date: 20140917
  Receipt Date: 20140923
  Transmission Date: 20150326
  Serious: Yes (Hospitalization, Other)
  Sender: FDA-Public Use
  Company Number: FR-BRISTOL-MYERS SQUIBB COMPANY-19091941

PATIENT
  Age: 38 Year
  Sex: Female
  Weight: 48.5 kg

DRUGS (1)
  1. SPRYCEL [Suspect]
     Active Substance: DASATINIB
     Indication: CHRONIC MYELOID LEUKAEMIA
     Dosage: 14DEC2012 TO 11JUN2013:100MG?12JUN2013 TO 27JUN2013:80MG?28JUN2013 TO 04JUL2013:60MG?11JUL13:50MG
     Dates: start: 20121214

REACTIONS (2)
  - Raynaud^s phenomenon [Not Recovered/Not Resolved]
  - Headache [Not Recovered/Not Resolved]

NARRATIVE: CASE EVENT DATE: 201301
